FAERS Safety Report 8818928 (Version 1)
Quarter: 2012Q4

REPORT INFORMATION
  Report Type: 
  Country: MX (occurrence: MX)
  Receive Date: 20121001
  Receipt Date: 20121001
  Transmission Date: 20130627
  Serious: Yes (Hospitalization, Other)
  Sender: FDA-Public Use
  Company Number: PHHY2012MX084644

PATIENT
  Sex: Female

DRUGS (2)
  1. EXELON PATCH [Suspect]
     Indication: DEMENTIA ALZHEIMER^S TYPE
     Dosage: 4.6 mg/5 cm2, daily
     Route: 062
     Dates: start: 201203, end: 201209
  2. EBIXA [Concomitant]
     Dosage: UNK UKN, UNK

REACTIONS (1)
  - Angina pectoris [Not Recovered/Not Resolved]
